FAERS Safety Report 12858171 (Version 1)
Quarter: 2016Q4

REPORT INFORMATION
  Report Type: Spontaneous
  Country: US (occurrence: US)
  Receive Date: 20161018
  Receipt Date: 20161018
  Transmission Date: 20170207
  Serious: No
  Sender: FDA-Public Use
  Company Number: US-SA-2016SA109392

PATIENT
  Age: 22 Year
  Sex: Female

DRUGS (1)
  1. LEMTRADA [Suspect]
     Active Substance: ALEMTUZUMAB
     Indication: MULTIPLE SCLEROSIS
     Route: 041
     Dates: start: 2016

REACTIONS (5)
  - Fatigue [Unknown]
  - Chest discomfort [Unknown]
  - Decreased appetite [Unknown]
  - Urticaria [Unknown]
  - Asthenia [Unknown]

NARRATIVE: CASE EVENT DATE: 20160604
